FAERS Safety Report 19660180 (Version 1)
Quarter: 2021Q3

REPORT INFORMATION
  Report Type: Spontaneous
  Country: US (occurrence: US)
  Receive Date: 20210805
  Receipt Date: 20210805
  Transmission Date: 20211014
  Serious: Yes (Other)
  Sender: FDA-Public Use
  Company Number: US-STRIDES ARCOLAB LIMITED-2021SP025885

PATIENT

DRUGS (2)
  1. MEMANTINE. [Suspect]
     Active Substance: MEMANTINE
     Indication: HEADACHE
     Dosage: 5 MILLIGRAM DAILY, INITIAL DOSE
     Route: 065
  2. MEMANTINE. [Suspect]
     Active Substance: MEMANTINE
     Dosage: 10 MILLIGRAM, BID (DOSE INCREASED BY 5MG/WEEK TO ACHIEVE A TARGET DOSE OF 10MG TWICE DAILY)
     Route: 065

REACTIONS (3)
  - Vestibular migraine [Unknown]
  - Condition aggravated [Unknown]
  - Off label use [Unknown]
